FAERS Safety Report 18327626 (Version 1)
Quarter: 2020Q3

REPORT INFORMATION
  Report Type: Spontaneous
  Country: US (occurrence: US)
  Receive Date: 20200930
  Receipt Date: 20200930
  Transmission Date: 20201103
  Serious: No
  Sender: FDA-Public Use
  Company Number: US-GLENMARK PHARMACEUTICALS-2020GMK046704

PATIENT

DRUGS (1)
  1. VERAPAMIL [Suspect]
     Active Substance: VERAPAMIL HYDROCHLORIDE
     Indication: VESTIBULAR MIGRAINE
     Dosage: 1 DOSAGE FORM, OD
     Route: 048
     Dates: start: 2013

REACTIONS (2)
  - Drug ineffective for unapproved indication [Unknown]
  - Illness [Unknown]

NARRATIVE: CASE EVENT DATE: 2013
